FAERS Safety Report 11298341 (Version 1)
Quarter: 2015Q3

REPORT INFORMATION
  Report Type: Spontaneous
  Country: US (occurrence: US)
  Receive Date: 20150722
  Receipt Date: 20150722
  Transmission Date: 20151125
  Serious: No
  Sender: FDA-Public Use
  Company Number: US-ELI_LILLY_AND_COMPANY-US201109003483

PATIENT
  Age: 5 Year
  Sex: Female

DRUGS (1)
  1. HUMATROPE [Suspect]
     Active Substance: SOMATROPIN
     Indication: TURNER^S SYNDROME
     Dosage: 0.55 MG, QD
     Dates: start: 20110901

REACTIONS (3)
  - Injection site pain [Unknown]
  - Underdose [Unknown]
  - Fear [Unknown]

NARRATIVE: CASE EVENT DATE: 20110904
